FAERS Safety Report 9407151 (Version 1)
Quarter: 2013Q3

REPORT INFORMATION
  Report Type: Spontaneous
  Country: US (occurrence: US)
  Receive Date: 20130718
  Receipt Date: 20130718
  Transmission Date: 20140515
  Serious: Yes (Hospitalization)
  Sender: FDA-Public Use
  Company Number: US-BAYER-2013-084404

PATIENT
  Age: 29 Year
  Sex: Female

DRUGS (32)
  1. YAZ [Suspect]
     Indication: POLYCYSTIC OVARIES
  2. SULFAMETHOXAZOLE W/TRIMETHOPRIM [Concomitant]
     Dosage: 800/600 TABLETS, 1 TWICE DAILY
     Route: 048
     Dates: start: 20031023
  3. MOTRIN [Concomitant]
     Dosage: 800 MG, EVERY 6 HOURS
  4. VALIUM [Concomitant]
     Indication: MUSCLE SPASMS
     Dosage: 5 MG, EVERY 6 HOURS
  5. NEXIUM [Concomitant]
     Dosage: 40 MG, ONE A DAY
     Route: 048
     Dates: start: 20080901
  6. ZOLOFT [Concomitant]
     Dosage: 100 MG, ONE IN THE MORNING
     Route: 048
     Dates: start: 20030724
  7. ZOLOFT [Concomitant]
     Dosage: UNK
     Route: 048
     Dates: start: 20080901
  8. GLUCOPHAGE XR [Concomitant]
     Dosage: 500 MG, 2 TABLETS TWICE DAILY
     Route: 048
  9. PRENATAL VITAMINS [Concomitant]
  10. CEPHALEXIN [Concomitant]
     Dosage: 500 MG, ONE THREE TIMES DAILY
     Route: 048
     Dates: start: 20031120
  11. DICYCLOMINE [Concomitant]
     Dosage: 20 MG, ONLY 1 TIME DAILY AS NEEDED
     Route: 048
     Dates: start: 20031208
  12. AMOXICILLIN W/CLAVULANIC ACID [Concomitant]
     Dosage: 500 MG, ONE TABLET EVERY EIGHT HOURS AS NEEDED
     Route: 048
     Dates: start: 20031208
  13. IBUPROFEN [Concomitant]
     Dosage: 800 MG, 1 TABLET EVERY 6 HOURS AS NEEDED
     Dates: start: 20080815
  14. DIAZEPAM [Concomitant]
     Indication: BACK PAIN
     Dosage: 5 MG, 1 EVERY 6 HOURS AS NEEDED
     Dates: start: 20080815
  15. SINGULAIR [Concomitant]
     Dosage: 10 MG, UNK
  16. GLUCOPHAGE [Concomitant]
     Dosage: UNK
     Route: 048
     Dates: start: 20080901
  17. ZYRTEC [Concomitant]
     Dosage: UNK
     Route: 048
     Dates: start: 20080901
  18. TERCONAZOLE [Concomitant]
     Dosage: 0.8 %,  20 GM.
     Route: 067
  19. FLUCONAZOLE [Concomitant]
     Dosage: 150 MG, 1 AS NEEDED.
     Route: 048
     Dates: start: 20080625
  20. FLUCONAZOLE [Concomitant]
     Dosage: 1 EVERY DAY
     Route: 048
     Dates: start: 20080625
  21. AZITHROMYCIN [Concomitant]
     Dosage: 250 MG, 2 TABLETS AT ONCE TODAY,THEN 1 TABLET A DAY FOR 4 DAYS
     Route: 048
     Dates: start: 20080709
  22. CLINDAMYCIN [Concomitant]
     Dosage: 1 %, APPLY TWICE DAILY
     Dates: start: 20080616
  23. PROVENTIL HFA [Concomitant]
     Dosage: INHALE 1-2 PUFFS 4 TIMES DAILY AS NEEDED
     Route: 045
     Dates: start: 20080718
  24. AMOXICILLIN [Concomitant]
     Dosage: 500 MG, 4 CAPSULES ONE HOUR BEFOR APPOINTMENT
     Route: 048
     Dates: start: 20081115
  25. METOPROLOL TARTRATE [Concomitant]
     Dosage: 25 MG, 1 TWICE DAILY
     Dates: start: 20081117
  26. PANTOPRAZOLE [Concomitant]
     Dosage: 20 MG, 1 EVERY MORNING
     Route: 048
     Dates: start: 20081117
  27. ACYCLOVIR [ACICLOVIR] [Concomitant]
     Dosage: 400 MG, 5 TABLETS EVERY DAY FOR 5 DAYS
     Route: 048
     Dates: start: 20081207
  28. CRESTOR [Concomitant]
     Dosage: 5 MG, 1 TABLET EVERY DAY
     Route: 048
     Dates: start: 20090121
  29. CIPROFLOXACIN [Concomitant]
     Dosage: 500 MG, 1 TABLET EVERY 12 HOURS FOR 7 DAYS
     Route: 048
     Dates: start: 20090125
  30. PHENAZOPYRIDINE [Concomitant]
     Dosage: 200 MG, 1 TABLET THREE TIMES DAILY FOR 2 DAYS
     Route: 048
     Dates: start: 20090125
  31. VITAMIN D [Concomitant]
     Dosage: 50000 IU, ONE A WEEK
     Route: 048
     Dates: start: 20090125
  32. ZOVIRAX [Concomitant]

REACTIONS (4)
  - Peripheral artery thrombosis [None]
  - Cholecystitis chronic [None]
  - Splenic vein thrombosis [None]
  - Phlebitis [None]
